FAERS Safety Report 24792267 (Version 1)
Quarter: 2024Q4

REPORT INFORMATION
  Report Type: Spontaneous
  Country: IN (occurrence: IN)
  Receive Date: 20241231
  Receipt Date: 20241231
  Transmission Date: 20250114
  Serious: Yes (Other)
  Sender: RANBAXY
  Company Number: IN-SUN PHARMACEUTICAL INDUSTRIES LTD.-2024R1-486978

PATIENT
  Age: 35 Year
  Sex: Male

DRUGS (1)
  1. ATORVASTATIN [Suspect]
     Active Substance: ATORVASTATIN
     Indication: Type IIa hyperlipidaemia
     Dosage: 40 MILLIGRAM
     Route: 065

REACTIONS (4)
  - Arteriosclerosis [Unknown]
  - Xanthelasma [Unknown]
  - Myocardial infarction [Unknown]
  - Supravalvular aortic stenosis [Unknown]
